FAERS Safety Report 6940419-8 (Version None)
Quarter: 2010Q3

REPORT INFORMATION
  Report Type: 
  Country: None (occurrence: None)
  Receive Date: 20100825
  Receipt Date: 20100811
  Transmission Date: 20110219
  Serious: Yes (Hospitalization, Other)
  Sender: FDA-Public Use
  Company Number: PHHY2010US53335

PATIENT
  Sex: Female

DRUGS (8)
  1. EXFORGE [Suspect]
     Dosage: 320/10 MG, UNK
  2. TEKTURNA [Suspect]
     Dosage: 300 MG, UNK
  3. FOSAMAX [Suspect]
     Dosage: UNK
  4. CLONIDINE [Concomitant]
     Dosage: 0.1 MG
  5. CLONIDINE [Concomitant]
     Dosage: 0.2 MG
  6. GLUCOPHAGE [Concomitant]
     Dosage: 500 MG
  7. SYNTHROID [Concomitant]
     Dosage: 25 MCG
  8. WELCHOL [Concomitant]
     Dosage: 3.75 GMS

REACTIONS (10)
  - ARTHRALGIA [None]
  - BLADDER DISORDER [None]
  - CONSTIPATION [None]
  - DRY MOUTH [None]
  - HAEMORRHAGE [None]
  - HYPERSENSITIVITY [None]
  - INCONTINENCE [None]
  - MALAISE [None]
  - PRURITUS GENERALISED [None]
  - VISION BLURRED [None]
